FAERS Safety Report 6414923-5 (Version None)
Quarter: 2009Q4

REPORT INFORMATION
  Report Type: 
  Country: None (occurrence: None)
  Receive Date: 20091026
  Receipt Date: 20090309
  Transmission Date: 20100525
  Serious: No
  Sender: FDA-Public Use
  Company Number: US-ABBOTT-09P-163-0561659-00

PATIENT
  Sex: Female
  Weight: 58.566 kg

DRUGS (1)
  1. LUPRON DEPOT [Suspect]
     Indication: UTERINE LEIOMYOMA
     Route: 030
     Dates: start: 20090223

REACTIONS (2)
  - UTERINE LEIOMYOMA [None]
  - WEIGHT INCREASED [None]
